FAERS Safety Report 21327954 (Version 2)
Quarter: 2022Q4

REPORT INFORMATION
  Report Type: Report from Study
  Country: US (occurrence: US)
  Receive Date: 20220913
  Receipt Date: 20221007
  Transmission Date: 20230113
  Serious: No
  Sender: FDA-Public Use
  Company Number: US-SA-SAC20220908000235

PATIENT
  Age: 57 Year
  Sex: Female

DRUGS (11)
  1. DUPILUMAB [Suspect]
     Active Substance: DUPILUMAB
     Indication: Dermatitis atopic
     Dosage: 600 MG, 1X
     Route: 058
     Dates: start: 20170731, end: 20170731
  2. DUPILUMAB [Suspect]
     Active Substance: DUPILUMAB
     Dosage: 300 MG, QOW
     Route: 058
     Dates: start: 201708, end: 2021
  3. DUPILUMAB [Suspect]
     Active Substance: DUPILUMAB
     Dosage: 300 MG, QOW
     Route: 058
     Dates: start: 20210201
  4. GLUCOSAMINE [Concomitant]
     Active Substance: GLUCOSAMINE
     Dosage: 1 DF, BID
  5. SYSTANE ICAPS MULTIVITAMIN [Concomitant]
     Indication: Visual impairment
     Dosage: QD
  6. VITAMIN B3 [Concomitant]
     Active Substance: NIACIN
  7. WOMEN^S MULTIVITE [Concomitant]
     Dosage: UNK
     Dates: start: 202208
  8. GARLIC [Concomitant]
     Active Substance: GARLIC
     Dosage: UNK
     Dates: start: 20220927
  9. CHAMOMILE [Concomitant]
     Active Substance: CHAMOMILE
  10. PEPPERMINT [MENTHA X PIPERITA] [Concomitant]
  11. DIETARY SUPPLEMENT [Concomitant]
     Active Substance: DIETARY SUPPLEMENT

REACTIONS (7)
  - Injection site rash [Unknown]
  - Blood cholesterol increased [Unknown]
  - Blood triglycerides increased [Unknown]
  - Alopecia [Unknown]
  - Condition aggravated [Unknown]
  - Injection site erythema [Unknown]
  - Injection site pain [Unknown]
